FAERS Safety Report 9728185 (Version 1)
Quarter: 2013Q4

REPORT INFORMATION
  Report Type: Spontaneous
  Country: JP (occurrence: JP)
  Receive Date: 20131204
  Receipt Date: 20131204
  Transmission Date: 20140711
  Serious: Yes (Hospitalization)
  Sender: FDA-Public Use
  Company Number: JP-SA-2013SA124878

PATIENT
  Age: 84 Year
  Sex: Male

DRUGS (1)
  1. GLIMEPIRIDE [Suspect]
     Indication: PRODUCT USED FOR UNKNOWN INDICATION
     Route: 065
     Dates: start: 201306

REACTIONS (2)
  - Hypoglycaemic encephalopathy [Recovering/Resolving]
  - Altered state of consciousness [Recovering/Resolving]
